FAERS Safety Report 16963131 (Version 1)
Quarter: 2019Q4

REPORT INFORMATION
  Report Type: Spontaneous
  Country: FR (occurrence: FR)
  Receive Date: 20191025
  Receipt Date: 20191025
  Transmission Date: 20200122
  Serious: Yes (Other)
  Sender: FDA-Public Use
  Company Number: FR-MYLANLABS-2019M1100259

PATIENT
  Age: 81 Year
  Sex: Female
  Weight: 46 kg

DRUGS (2)
  1. ORBENINE [Suspect]
     Active Substance: CLOXACILLIN SODIUM
     Indication: PRODUCT USED FOR UNKNOWN INDICATION
     Dosage: 19 GRAM, QD
     Route: 042
     Dates: start: 20190315, end: 20190319
  2. PIPERACILLIN AND TAZOBACTAM [Suspect]
     Active Substance: PIPERACILLIN SODIUM\TAZOBACTAM SODIUM
     Indication: SKIN INFECTION
     Dosage: 12 GRAM, QD
     Route: 042
     Dates: start: 20190312, end: 20190315

REACTIONS (2)
  - Cholestasis [Recovered/Resolved]
  - Rash [Recovered/Resolved]

NARRATIVE: CASE EVENT DATE: 20190319
